FAERS Safety Report 5012633-2 (Version None)
Quarter: 2006Q2

REPORT INFORMATION
  Report Type: 
  Country: None (occurrence: None)
  Receive Date: 20060411
  Receipt Date: 20060119
  Transmission Date: 20061013
  Serious: Yes (Other)
  Sender: FDA-Public Use
  Company Number: 433601

PATIENT
  Sex: Female

DRUGS (2)
  1. FUZEON [Suspect]
     Indication: DRUG USE FOR UNKNOWN INDICATION
     Dosage: 1 PER 12 HOUR SUBCUTANEOUS
     Route: 058
  2. INSULIN [Concomitant]

REACTIONS (1)
  - INJECTION SITE REACTION [None]
